FAERS Safety Report 6217896-3 (Version None)
Quarter: 2009Q2

REPORT INFORMATION
  Report Type: 
  Country: None (occurrence: None)
  Receive Date: 20090604
  Receipt Date: 20090525
  Transmission Date: 20091009
  Serious: No
  Sender: FDA-Public Use
  Company Number: 006584

PATIENT
  Age: 4 Year

DRUGS (5)
  1. BUSULFEX [Suspect]
     Indication: STEM CELL TRANSPLANT
     Dosage: 16 MG/KG, QD
  2. CYCLOPHOSPHAMIDE [Concomitant]
  3. CYCLOSPORINE [Concomitant]
  4. COTRIMOXAZOL ^COPHAR^ (SULFAMETHOXAZOLE, TRIMETHOPRIM) [Concomitant]
  5. ITRACONAZOLE [Concomitant]

REACTIONS (8)
  - ACUTE GRAFT VERSUS HOST DISEASE IN SKIN [None]
  - BRONCHIECTASIS [None]
  - COLITIS [None]
  - COMPLICATIONS OF BONE MARROW TRANSPLANT [None]
  - EXERCISE TOLERANCE DECREASED [None]
  - INFECTION [None]
  - LUNG DISORDER [None]
  - OBLITERATIVE BRONCHIOLITIS [None]
